FAERS Safety Report 8036730-2 (Version None)
Quarter: 2012Q1

REPORT INFORMATION
  Report Type: 
  Country: None (occurrence: None)
  Receive Date: 20120111
  Receipt Date: 20120104
  Transmission Date: 20120608
  Serious: Yes (Hospitalization)
  Sender: FDA-Public Use
  Company Number: IE-MEDIMMUNE-MEDI-0014392

PATIENT
  Sex: Female
  Weight: 6.5 kg

DRUGS (3)
  1. SYNAGIS [Suspect]
     Route: 030
     Dates: start: 20111109, end: 20111109
  2. LACTULOSE [Concomitant]
  3. ERGOCALCIFEROL [Concomitant]

REACTIONS (1)
  - BRONCHIOLITIS [None]
